FAERS Safety Report 6394837-X (Version None)
Quarter: 2009Q4

REPORT INFORMATION
  Report Type: 
  Country: None (occurrence: None)
  Receive Date: 20091009
  Receipt Date: 20091005
  Transmission Date: 20100525
  Serious: Yes (Death, Hospitalization)
  Sender: FDA-Public Use
  Company Number: CA-BAYER-200931033NA

PATIENT
  Age: 41 Year
  Sex: Female

DRUGS (6)
  1. SORAFENIB [Suspect]
     Indication: BREAST CANCER METASTATIC
     Dosage: TOTAL DAILY DOSE: 800 MG  UNIT DOSE: 200 MG
     Route: 048
     Dates: start: 20090811, end: 20090826
  2. NAVELBINE [Suspect]
     Indication: BREAST CANCER METASTATIC
     Dosage: DAYS 1 AND 8 OF 21-DAY CYCLES
     Route: 042
     Dates: start: 20090811
  3. NAVELBINE [Suspect]
     Dosage: DAYS 1 AND 8 OF 21-DAY CYCLES
     Route: 042
     Dates: start: 20090817
  4. PAMIDRONATE DISODIUM [Concomitant]
     Dates: start: 20090301
  5. HYDROMORPHONE CONTIN [Concomitant]
     Dates: start: 20090805
  6. DILAUDID [Concomitant]
     Dates: start: 20090805

REACTIONS (2)
  - FEBRILE NEUTROPENIA [None]
  - SEPSIS [None]
